FAERS Safety Report 16113186 (Version 3)
Quarter: 2019Q2

REPORT INFORMATION
  Report Type: Spontaneous
  Country: JP (occurrence: JP)
  Receive Date: 20190325
  Receipt Date: 20190530
  Transmission Date: 20190711
  Serious: Yes (Life-Threatening, Hospitalization)
  Sender: FDA-Public Use
  Company Number: JP-ALLERGAN-1912439US

PATIENT
  Sex: Female

DRUGS (11)
  1. BIPERIDEN [Concomitant]
     Active Substance: BIPERIDEN
     Dosage: 5 MG
     Route: 030
     Dates: start: 20190222, end: 20190307
  2. ZOPICLONE [Concomitant]
     Active Substance: ZOPICLONE
     Dosage: UNK
     Route: 065
     Dates: start: 20160705, end: 20190313
  3. ASENAPINE MALEATE - BP [Suspect]
     Active Substance: ASENAPINE MALEATE
     Indication: SCHIZOPHRENIA
     Dosage: 5 MG, BID
     Route: 060
     Dates: start: 20190228, end: 20190313
  4. OLANZAPINE. [Concomitant]
     Active Substance: OLANZAPINE
     Dosage: UNK
     Route: 065
  5. SUVOREXANT. [Concomitant]
     Active Substance: SUVOREXANT
     Dosage: UNK
     Route: 065
     Dates: start: 20160502, end: 20190313
  6. OLANZAPINE. [Concomitant]
     Active Substance: OLANZAPINE
     Dosage: 5 MG, QD
     Route: 065
     Dates: start: 20190221, end: 20190228
  7. OLANZAPINE. [Concomitant]
     Active Substance: OLANZAPINE
     Dosage: 10 MG, QD
     Route: 065
     Dates: start: 20190206
  8. ALPRAZOLAM. [Concomitant]
     Active Substance: ALPRAZOLAM
     Dosage: UNK
     Route: 065
     Dates: start: 20160212, end: 20190313
  9. MOSAPRIDE [Concomitant]
     Active Substance: MOSAPRIDE
     Dosage: UNK
     Route: 065
     Dates: start: 20070403, end: 20190313
  10. ESCITALOPRAM OXALATE. [Concomitant]
     Active Substance: ESCITALOPRAM OXALATE
     Dosage: UNK
     Route: 065
     Dates: start: 20170616, end: 20190313
  11. ATORVASTATIN CALCIUM. [Concomitant]
     Active Substance: ATORVASTATIN CALCIUM
     Dosage: UNK
     Route: 065
     Dates: start: 20181028, end: 20190313

REACTIONS (4)
  - Loss of consciousness [Unknown]
  - Cyanosis [Unknown]
  - Apnoea [Unknown]
  - Pulmonary infarction [Not Recovered/Not Resolved]

NARRATIVE: CASE EVENT DATE: 20190314
